FAERS Safety Report 4596118-3 (Version None)
Quarter: 2005Q1

REPORT INFORMATION
  Report Type: 
  Country: None (occurrence: None)
  Receive Date: 20050224
  Receipt Date: 20050210
  Transmission Date: 20050727
  Serious: Yes (Other)
  Sender: FDA-Public Use
  Company Number: A-CH2004-08453

PATIENT
  Age: 55 Year
  Sex: Male
  Weight: 89 kg

DRUGS (4)
  1. TRACLEER [Suspect]
     Indication: PULMONARY HYPERTENSION
     Dosage: SEE IMAGE, ORAL
     Route: 048
     Dates: start: 20030901, end: 20030901
  2. TRACLEER [Suspect]
     Indication: PULMONARY HYPERTENSION
     Dosage: SEE IMAGE, ORAL
     Route: 048
     Dates: start: 20030901, end: 20041201
  3. DICUMAROL (DICOUMAROL) [Concomitant]
  4. NEXIUM [Concomitant]

REACTIONS (1)
  - POLYNEUROPATHY [None]
